FAERS Safety Report 7994437-1 (Version None)
Quarter: 2011Q4

REPORT INFORMATION
  Report Type: 
  Country: None (occurrence: None)
  Receive Date: 20111220
  Receipt Date: 20110830
  Transmission Date: 20120403
  Serious: No
  Sender: FDA-Public Use
  Company Number: US-GLAXOSMITHKLINE-A0942870A

PATIENT
  Age: 40 Year
  Sex: Female

DRUGS (4)
  1. LAMICTAL [Suspect]
     Indication: BIPOLAR DISORDER
     Dosage: 100MG TWICE PER DAY
     Route: 048
     Dates: start: 20101201
  2. SEROQUEL [Concomitant]
  3. CYMBALTA [Concomitant]
  4. TOPAMAX [Concomitant]

REACTIONS (3)
  - RASH [None]
  - OVERDOSE [None]
  - OFF LABEL USE [None]
